FAERS Safety Report 16966390 (Version 1)
Quarter: 2019Q4

REPORT INFORMATION
  Report Type: Report from Study
  Country: IN (occurrence: IN)
  Receive Date: 20191028
  Receipt Date: 20191028
  Transmission Date: 20200122
  Serious: Yes (Death)
  Sender: FDA-Public Use
  Company Number: IN-ASTRAZENECA-2019SF51812

PATIENT
  Age: 20056 Day
  Sex: Female

DRUGS (1)
  1. FASLODEX [Suspect]
     Active Substance: FULVESTRANT
     Indication: LUNG NEOPLASM MALIGNANT
     Dosage: 500.0MG UNKNOWN
     Route: 030
     Dates: start: 20190327, end: 20191014

REACTIONS (1)
  - Death [Fatal]

NARRATIVE: CASE EVENT DATE: 20191014
